FAERS Safety Report 4781286-0 (Version None)
Quarter: 2005Q3

REPORT INFORMATION
  Report Type: 
  Country: None (occurrence: None)
  Receive Date: 20050914
  Receipt Date: 20050411
  Transmission Date: 20060218
  Serious: Yes (Hospitalization)
  Sender: FDA-Public Use
  Company Number: 163-20785-05040270

PATIENT
  Age: 65 Year
  Sex: Female

DRUGS (3)
  1. THALOMID [Suspect]
     Indication: METASTASES TO CENTRAL NERVOUS SYSTEM
     Dosage: 200MG INCREASED TO 600MG, AT BEDTIME, ORAL
     Route: 048
     Dates: start: 20041202, end: 20050126
  2. THALOMID [Suspect]
     Indication: NON-SMALL CELL LUNG CANCER
     Dosage: 200MG INCREASED TO 600MG, AT BEDTIME, ORAL
     Route: 048
     Dates: start: 20041202, end: 20050126
  3. TEMODAR [Suspect]
     Indication: METASTASES TO CENTRAL NERVOUS SYSTEM
     Dosage: 120 MG, DAILY X21 DAYS, ORAL
     Route: 048
     Dates: start: 20041208, end: 20041228

REACTIONS (3)
  - DEEP VEIN THROMBOSIS [None]
  - DYSPNOEA [None]
  - PULMONARY EMBOLISM [None]
